FAERS Safety Report 6100943-7 (Version None)
Quarter: 2009Q1

REPORT INFORMATION
  Report Type: 
  Country: None (occurrence: None)
  Receive Date: 20090226
  Receipt Date: 20090223
  Transmission Date: 20090719
  Serious: Yes (Hospitalization)
  Sender: FDA-Public Use
  Company Number: CHPA2009GB00440

PATIENT
  Age: 60 Year
  Sex: Male

DRUGS (2)
  1. LAMISIL [Suspect]
     Indication: FUNGAL INFECTION
     Dosage: TOPICAL
     Route: 061
     Dates: start: 20081124, end: 20081127
  2. LAMISIL [Suspect]
     Indication: SKIN IRRITATION
     Dosage: TOPICAL
     Route: 061
     Dates: start: 20081124, end: 20081127

REACTIONS (5)
  - APPLICATION SITE BURN [None]
  - ERYTHEMA MULTIFORME [None]
  - INFECTION [None]
  - PAIN [None]
  - REACTION TO PRESERVATIVES [None]
